FAERS Safety Report 21394330 (Version 1)
Quarter: 2022Q3

REPORT INFORMATION
  Report Type: Other
  Country: CA (occurrence: CA)
  Receive Date: 20220930
  Receipt Date: 20220930
  Transmission Date: 20221027
  Serious: Yes (Hospitalization, Other)
  Sender: FDA-Public Use
  Company Number: CA-CELLTRION INC.-2022CA015578

PATIENT

DRUGS (6)
  1. RITUXIMAB [Suspect]
     Active Substance: RITUXIMAB
     Indication: Splenomegaly
     Dosage: 375 MILLIGRAM, 1 EVERY 1 WEEKS
     Route: 065
  2. RITUXIMAB [Suspect]
     Active Substance: RITUXIMAB
     Indication: Lymphadenopathy
  3. RITUXIMAB [Suspect]
     Active Substance: RITUXIMAB
     Indication: Cytopenia
  4. RITUXIMAB [Suspect]
     Active Substance: RITUXIMAB
     Indication: Blood immunoglobulin M increased
  5. RITUXIMAB [Suspect]
     Active Substance: RITUXIMAB
     Indication: Blood immunoglobulin G increased
  6. HUMAN IMMUNOGLOBULIN G [Concomitant]
     Active Substance: HUMAN IMMUNOGLOBULIN G

REACTIONS (11)
  - Blood immunoglobulin G increased [Recovered/Resolved]
  - Lymphoid tissue hyperplasia [Recovered/Resolved]
  - Blood immunoglobulin M increased [Recovered/Resolved]
  - Lung infiltration [Recovered/Resolved]
  - Lymphadenopathy [Recovered/Resolved]
  - Cytopenia [Recovered/Resolved]
  - Dyspnoea [Recovered/Resolved]
  - Hypoxia [Recovered/Resolved]
  - Drug effective for unapproved indication [Recovered/Resolved]
  - Off label use [Recovered/Resolved]
  - Off label use [Unknown]
